FAERS Safety Report 7500478-0 (Version None)
Quarter: 2011Q2

REPORT INFORMATION
  Report Type: 
  Country: None (occurrence: None)
  Receive Date: 20110524
  Receipt Date: 20110420
  Transmission Date: 20111010
  Serious: No
  Sender: FDA-Public Use
  Company Number: US-BRISTOL-MYERS SQUIBB COMPANY-15687742

PATIENT
  Age: 65 Year
  Sex: Female
  Weight: 98 kg

DRUGS (9)
  1. ONGLYZA [Suspect]
     Dosage: STARTED A YEAR AGO
  2. DOXASIN [Concomitant]
  3. ALLOPURINOL [Concomitant]
  4. METFORMIN HCL [Concomitant]
  5. ZETIA [Concomitant]
  6. VITAMINS [Concomitant]
  7. GLIPIZIDE [Concomitant]
  8. TOPROL-XL [Concomitant]
  9. HYZAAR [Concomitant]

REACTIONS (1)
  - HEART RATE INCREASED [None]
